FAERS Safety Report 5780877-8 (Version None)
Quarter: 2008Q2

REPORT INFORMATION
  Report Type: 
  Country: None (occurrence: None)
  Receive Date: 20080620
  Receipt Date: 20080610
  Transmission Date: 20081010
  Serious: Yes (Death, Hospitalization, Other)
  Sender: FDA-Public Use
  Company Number: US-PFIZER INC-2008030589

PATIENT
  Sex: Male
  Weight: 61 kg

DRUGS (5)
  1. DILANTIN [Suspect]
     Indication: CONVULSION
     Route: 048
  2. FOSPHENYTOIN SODIUM [Suspect]
     Indication: CONVULSION
  3. DILANTIN [Suspect]
     Indication: CONVULSION
  4. TOPAMAX [Concomitant]
     Indication: CONVULSION
  5. DEPAKOTE [Concomitant]
     Indication: CONVULSION

REACTIONS (4)
  - ANXIETY [None]
  - BLINDNESS [None]
  - STEVENS-JOHNSON SYNDROME [None]
  - TOXIC EPIDERMAL NECROLYSIS [None]
